FAERS Safety Report 11073163 (Version 1)
Quarter: 2015Q2

REPORT INFORMATION
  Report Type: Report from Study
  Country: CA (occurrence: CA)
  Receive Date: 20150428
  Receipt Date: 20150428
  Transmission Date: 20150821
  Serious: Yes (Hospitalization)
  Sender: FDA-Public Use
  Company Number: CA-UCBSA-2015010591

PATIENT
  Sex: Female

DRUGS (1)
  1. CERTOLIZUMAB PEGOL RA [Suspect]
     Active Substance: CERTOLIZUMAB PEGOL
     Indication: RHEUMATOID ARTHRITIS
     Dosage: 400 MG, EV 2 WEEKS(QOW) (400 MG/ Q2WK X 3)
     Route: 058
     Dates: start: 20150311, end: 20150408

REACTIONS (2)
  - Injection site erythema [Unknown]
  - Emotional distress [Recovering/Resolving]

NARRATIVE: CASE EVENT DATE: 2015
